FAERS Safety Report 17029911 (Version 1)
Quarter: 2019Q4

REPORT INFORMATION
  Report Type: Report from Study
  Country: US (occurrence: US)
  Receive Date: 20191114
  Receipt Date: 20191114
  Transmission Date: 20200122
  Serious: No
  Sender: FDA-Public Use
  Company Number: US-BEH-2019109405

PATIENT
  Age: 2 Year
  Sex: Female
  Weight: 9.52 kg

DRUGS (1)
  1. HIZENTRA [Suspect]
     Active Substance: HUMAN IMMUNOGLOBULIN G
     Indication: SKIN MALFORMATION
     Dosage: 2 GRAM, QOW
     Route: 058
     Dates: start: 20191028

REACTIONS (3)
  - Infusion site urticaria [Recovering/Resolving]
  - No adverse event [Unknown]
  - Product use in unapproved indication [Unknown]

NARRATIVE: CASE EVENT DATE: 20191111
